FAERS Safety Report 4944241-3 (Version None)
Quarter: 2006Q1

REPORT INFORMATION
  Report Type: 
  Country: None (occurrence: None)
  Receive Date: 20060309
  Receipt Date: 20060221
  Transmission Date: 20060701
  Serious: Yes (Hospitalization)
  Sender: FDA-Public Use
  Company Number: 2005BI019610

PATIENT
  Sex: Female

DRUGS (17)
  1. AVONEX [Suspect]
     Indication: MULTIPLE SCLEROSIS
     Dosage: 30 UG; QW; IM
     Route: 030
     Dates: start: 20050711
  2. AVONEX [Suspect]
     Indication: MULTIPLE SCLEROSIS
     Dosage: 30 UG; QW; IM
     Route: 030
     Dates: start: 20060101
  3. STEROIDS NOS [Concomitant]
  4. TRILEPTAL [Concomitant]
  5. PLAQUENIL [Concomitant]
  6. MOBIC [Concomitant]
  7. PREDNISONE [Concomitant]
  8. FOLATE [Concomitant]
  9. MULTIVITAMIN [Concomitant]
  10. XANAX [Concomitant]
  11. PROTONIX [Concomitant]
  12. B6 [Concomitant]
  13. CIPRO [Concomitant]
  14. ZITHROMAX [Concomitant]
  15. ATIVAN [Concomitant]
  16. PROMETHAZINE AND CODEINE SYRUP [Concomitant]
  17. NEURONTIN [Concomitant]

REACTIONS (4)
  - BRONCHITIS [None]
  - FATIGUE [None]
  - GASTRIC ULCER HAEMORRHAGE [None]
  - MYALGIA [None]
